FAERS Safety Report 25070406 (Version 1)
Quarter: 2025Q1

REPORT INFORMATION
  Report Type: Report from Study
  Country: US (occurrence: US)
  Receive Date: 20250312
  Receipt Date: 20250312
  Transmission Date: 20250408
  Serious: Yes (Hospitalization, Other)
  Sender: ALEXION PHARMACEUTICALS
  Company Number: US-AstraZeneca-CH-00818023A

PATIENT
  Age: 60 Year

DRUGS (12)
  1. DAPAGLIFLOZIN [Suspect]
     Active Substance: DAPAGLIFLOZIN
     Route: 065
  2. BUDESONIDE [Concomitant]
     Active Substance: BUDESONIDE
     Route: 065
  3. ARFORMOTEROL [Concomitant]
     Active Substance: ARFORMOTEROL
  4. IPRATROPIUM [Concomitant]
     Active Substance: IPRATROPIUM
  5. AMIODARONE [Concomitant]
     Active Substance: AMIODARONE
  6. APIXABAN [Concomitant]
     Active Substance: APIXABAN
  7. ASPIRIN [Concomitant]
     Active Substance: ASPIRIN
  8. ATORVASTATIN [Concomitant]
     Active Substance: ATORVASTATIN
  9. CARVEDILOL [Concomitant]
     Active Substance: CARVEDILOL
  10. FUROSEMIDE [Concomitant]
     Active Substance: FUROSEMIDE
  11. LOSARTAN [Concomitant]
     Active Substance: LOSARTAN
  12. SPIRONOLACTONE [Concomitant]
     Active Substance: SPIRONOLACTONE

REACTIONS (1)
  - Acute respiratory failure [Unknown]
